FAERS Safety Report 8462699-2 (Version None)
Quarter: 2012Q2

REPORT INFORMATION
  Report Type: 
  Country: None (occurrence: None)
  Receive Date: 20120625
  Receipt Date: 20120622
  Transmission Date: 20120825
  Serious: Yes (Death)
  Sender: FDA-Public Use
  Company Number: US-ROCHE-1080722

PATIENT
  Sex: Female

DRUGS (3)
  1. ACTEMRA [Suspect]
     Indication: RHEUMATOID ARTHRITIS
     Route: 042
     Dates: start: 20111012, end: 20111012
  2. ACTEMRA [Suspect]
     Route: 042
     Dates: start: 20120107, end: 20120107
  3. METHOTREXATE [Concomitant]
     Indication: RHEUMATOID ARTHRITIS
     Route: 048
     Dates: start: 20111210, end: 20111226

REACTIONS (2)
  - PULMONARY OEDEMA [None]
  - CARDIOPULMONARY FAILURE [None]
